FAERS Safety Report 5453671-5 (Version None)
Quarter: 2007Q3

REPORT INFORMATION
  Report Type: 
  Country: None (occurrence: None)
  Receive Date: 20070917
  Receipt Date: 20070906
  Transmission Date: 20080115
  Serious: Yes (Death)
  Sender: FDA-Public Use
  Company Number: US-JNJFOC-20070803318

PATIENT
  Sex: Male

DRUGS (8)
  1. REMICADE [Suspect]
     Dosage: ON REMICADE APPROXIMATELY SIX MONTHS
     Route: 042
  2. REMICADE [Suspect]
     Dosage: ON REMICADE APPROXIMATELY SIX MONTHS
     Route: 042
  3. REMICADE [Suspect]
     Dosage: ON REMICADE APPROXIMATELY SIX MONTHS
     Route: 042
  4. REMICADE [Suspect]
     Dosage: ON REMICADE APPROXIMATELY SIX MONTHS
     Route: 042
  5. REMICADE [Suspect]
     Indication: WEGENER'S GRANULOMATOSIS
     Dosage: ON REMICADE APPROXIMATELY SIX MONTHS
     Route: 042
  6. MTX [Concomitant]
  7. TYLOX [Concomitant]
  8. IMURAN [Concomitant]

REACTIONS (3)
  - DEATH [None]
  - MALIGNANT MELANOMA [None]
  - NEUROENDOCRINE CARCINOMA OF THE SKIN [None]
